FAERS Safety Report 16141946 (Version 1)
Quarter: 2019Q2

REPORT INFORMATION
  Report Type: Spontaneous
  Country: US (occurrence: US)
  Receive Date: 20190331
  Receipt Date: 20190331
  Transmission Date: 20190711
  Serious: Yes (Life-Threatening)
  Sender: FDA-Public Use
  Company Number: None

PATIENT
  Age: 82 Year
  Sex: Female

DRUGS (1)
  1. FERAHEME [Suspect]
     Active Substance: FERUMOXYTOL NON-STOICHIOMETRIC MAGNETITE

REACTIONS (7)
  - Flushing [None]
  - Back pain [None]
  - Dizziness [None]
  - Hypotension [None]
  - Feeling hot [None]
  - Infusion related reaction [None]
  - Nausea [None]

NARRATIVE: CASE EVENT DATE: 20190321
